FAERS Safety Report 10920605 (Version 2)
Quarter: 2015Q2

REPORT INFORMATION
  Report Type: Report from Study
  Country: BR (occurrence: BR)
  Receive Date: 20150317
  Receipt Date: 20150401
  Transmission Date: 20150821
  Serious: Yes (Other)
  Sender: FDA-Public Use
  Company Number: PHHY2015BR031366

PATIENT
  Age: 80 Year
  Sex: Female
  Weight: 70 kg

DRUGS (1)
  1. ACLASTA [Suspect]
     Active Substance: ZOLEDRONIC ACID
     Indication: OSTEITIS DEFORMANS
     Dosage: 5 MG (5MG/100ML), UNK
     Route: 042
     Dates: start: 201407

REACTIONS (10)
  - Depression [Recovering/Resolving]
  - Exostosis [Not Recovered/Not Resolved]
  - Disease progression [Unknown]
  - Back pain [Not Recovered/Not Resolved]
  - Bone disorder [Unknown]
  - Osteitis deformans [Unknown]
  - Weight abnormal [Not Recovered/Not Resolved]
  - Anxiety [Recovering/Resolving]
  - Ear infection fungal [Recovering/Resolving]
  - Gait disturbance [Unknown]

NARRATIVE: CASE EVENT DATE: 201501
